FAERS Safety Report 6680953-1 (Version None)
Quarter: 2010Q2

REPORT INFORMATION
  Report Type: 
  Country: None (occurrence: None)
  Receive Date: 20100412
  Receipt Date: 20100225
  Transmission Date: 20101027
  Serious: Yes (Death)
  Sender: FDA-Public Use
  Company Number: 008932

PATIENT
  Age: 12 Year
  Sex: Male

DRUGS (2)
  1. BUSULFEX [Suspect]
     Indication: CORD BLOOD TRANSPLANT THERAPY
  2. FLUDARABINE PHOSPHATE [Concomitant]

REACTIONS (7)
  - ABDOMINAL PAIN [None]
  - ALTERED STATE OF CONSCIOUSNESS [None]
  - BRAIN STEM HAEMORRHAGE [None]
  - ENCEPHALITIS VIRAL [None]
  - PYREXIA [None]
  - RASH [None]
  - THROMBOTIC MICROANGIOPATHY [None]
